FAERS Safety Report 19087804 (Version 1)
Quarter: 2021Q2

REPORT INFORMATION
  Report Type: Spontaneous
  Country: US (occurrence: US)
  Receive Date: 20210402
  Receipt Date: 20210402
  Transmission Date: 20210717
  Serious: No
  Sender: FDA-Public Use
  Company Number: None

PATIENT
  Age: 52 Year
  Sex: Female
  Weight: 92.5 kg

DRUGS (1)
  1. BAMLANIVIMAB?700MG (LOT#D2000185) ETESEVIMAB 1400MG (LOT#D351006A) [Suspect]
     Active Substance: BAMLANIVIMAB\ETESEVIMAB
     Indication: SARS-COV-2 TEST POSITIVE

REACTIONS (5)
  - Dyspnoea [None]
  - Anxiety [None]
  - Back pain [None]
  - Infusion related reaction [None]
  - Blood pressure systolic increased [None]

NARRATIVE: CASE EVENT DATE: 20210402
